FAERS Safety Report 13806091 (Version 2)
Quarter: 2017Q3

REPORT INFORMATION
  Report Type: Report from Study
  Country: DE (occurrence: DE)
  Receive Date: 20170728
  Receipt Date: 20170910
  Transmission Date: 20171127
  Serious: No
  Sender: FDA-Public Use
  Company Number: PHHY2017DE110422

PATIENT
  Sex: Male
  Weight: 110 kg

DRUGS (16)
  1. COSENTYX [Suspect]
     Active Substance: SECUKINUMAB
     Dosage: 150 MG, ONCE PER APPLICATION
     Route: 065
     Dates: start: 20161111
  2. COSENTYX [Suspect]
     Active Substance: SECUKINUMAB
     Dosage: 150 MG, ONCE PER APPLICATION
     Route: 065
     Dates: start: 20170311
  3. COSENTYX [Suspect]
     Active Substance: SECUKINUMAB
     Indication: ANKYLOSING SPONDYLITIS
     Dosage: 150 MG, ONCE PER APPLICATION
     Route: 065
     Dates: start: 20160606
  4. COSENTYX [Suspect]
     Active Substance: SECUKINUMAB
     Dosage: 150 MG, ONCE PER APPLICATION
     Route: 065
     Dates: start: 20161011
  5. COSENTYX [Suspect]
     Active Substance: SECUKINUMAB
     Dosage: 150 MG, ONCE PER APPLICATION
     Route: 065
     Dates: start: 20170528
  6. COSENTYX [Suspect]
     Active Substance: SECUKINUMAB
     Dosage: 150 MG, ONCE PER APPLICATION
     Route: 065
     Dates: start: 20160804
  7. COSENTYX [Suspect]
     Active Substance: SECUKINUMAB
     Dosage: 150 MG, ONCE PER APPLICATION
     Route: 065
     Dates: start: 20160620
  8. COSENTYX [Suspect]
     Active Substance: SECUKINUMAB
     Dosage: 150 MG, ONCE PER APPLICATION
     Route: 065
     Dates: start: 20161211
  9. COSENTYX [Suspect]
     Active Substance: SECUKINUMAB
     Dosage: 150 MG, ONCE PER APPLICATION
     Route: 065
     Dates: start: 20160627
  10. PREDNISOLONE. [Concomitant]
     Active Substance: PREDNISOLONE
     Indication: ANKYLOSING SPONDYLITIS
     Dosage: 5 MG, QD
     Route: 048
     Dates: end: 20160705
  11. COSENTYX [Suspect]
     Active Substance: SECUKINUMAB
     Dosage: 150 MG, ONCE PER APPLICATION
     Route: 065
     Dates: start: 20170111
  12. COSENTYX [Suspect]
     Active Substance: SECUKINUMAB
     Dosage: 150 MG, ONCE PER APPLICATION
     Route: 065
     Dates: start: 20170211
  13. COSENTYX [Suspect]
     Active Substance: SECUKINUMAB
     Dosage: 150 MG, ONCE PER APPLICATION
     Route: 065
     Dates: start: 20170428
  14. COSENTYX [Suspect]
     Active Substance: SECUKINUMAB
     Dosage: 150 MG, ONCE PER APPLICATION
     Route: 065
     Dates: start: 20160613
  15. COSENTYX [Suspect]
     Active Substance: SECUKINUMAB
     Dosage: 150 MG, ONCE PER APPLICATION
     Route: 065
     Dates: start: 20160704
  16. COSENTYX [Suspect]
     Active Substance: SECUKINUMAB
     Dosage: 150 MG, ONCE PER APPLICATION
     Route: 065
     Dates: start: 20160904

REACTIONS (2)
  - Inappropriate schedule of drug administration [Unknown]
  - Upper respiratory tract infection [Unknown]

NARRATIVE: CASE EVENT DATE: 20170428
